FAERS Safety Report 21526154 (Version 1)
Quarter: 2022Q4

REPORT INFORMATION
  Report Type: Spontaneous
  Country: GB (occurrence: GB)
  Receive Date: 20221031
  Receipt Date: 20221031
  Transmission Date: 20230113
  Serious: Yes (Hospitalization, Other)
  Sender: FDA-Public Use
  Company Number: GB-ABBVIE-22K-405-4461997-00

PATIENT
  Age: 20 Year
  Sex: Male

DRUGS (36)
  1. CYCLOPHOSPHAMIDE [Suspect]
     Active Substance: CYCLOPHOSPHAMIDE
     Indication: Refractory cancer
     Dosage: 250 MG/M2, 21D (MAXIMUM 5 DAYS EVERY 21 DAYS)
     Route: 065
     Dates: start: 20220221
  2. IFOSFAMIDE [Suspect]
     Active Substance: IFOSFAMIDE
     Indication: Neoplasm
     Route: 065
     Dates: start: 20170519, end: 20171118
  3. DOXORUBICIN [Suspect]
     Active Substance: DOXORUBICIN
     Indication: Neoplasm
     Route: 065
     Dates: start: 20200430, end: 20200818
  4. MESNA [Suspect]
     Active Substance: MESNA
     Indication: Neoplasm
     Dosage: UNKNOWN
     Route: 065
     Dates: start: 20170519, end: 20171118
  5. DOCUSATE SODIUM [Suspect]
     Active Substance: DOCUSATE SODIUM
     Indication: Product used for unknown indication
     Dosage: UNK
     Route: 050
     Dates: start: 20220301, end: 202203
  6. DOCUSATE SODIUM [Suspect]
     Active Substance: DOCUSATE SODIUM
     Dosage: UNKNOWN; ;
     Route: 050
     Dates: start: 20220308
  7. DOCUSATE SODIUM [Suspect]
     Active Substance: DOCUSATE SODIUM
     Indication: Product used for unknown indication
     Route: 065
     Dates: start: 20220301
  8. CETIRIZINE HYDROCHLORIDE [Suspect]
     Active Substance: CETIRIZINE HYDROCHLORIDE
     Indication: Product used for unknown indication
     Dosage: ZIRTEK ALLERGY
     Route: 050
     Dates: start: 20220301
  9. TOPOTECAN HYDROCHLORIDE [Suspect]
     Active Substance: TOPOTECAN HYDROCHLORIDE
     Indication: Refractory cancer
     Dosage: 0.75 MG/M2, MAXIMUM 5 DAYS
     Route: 042
     Dates: start: 20220221
  10. MORPHINE SULFATE [Suspect]
     Active Substance: MORPHINE SULFATE
     Indication: Product used for unknown indication
     Dosage: UNKNOWN
     Route: 065
  11. MORPHINE SULFATE [Suspect]
     Active Substance: MORPHINE SULFATE
     Indication: Product used for unknown indication
     Route: 065
  12. HYDROCORTISONE ACETATE\LIDOCAINE HYDROCHLORIDE [Suspect]
     Active Substance: HYDROCORTISONE ACETATE\LIDOCAINE HYDROCHLORIDE
     Indication: Adverse event
     Dosage: UNK
     Route: 065
  13. HYDROCORTISONE ACETATE [Suspect]
     Active Substance: HYDROCORTISONE ACETATE
     Indication: Adverse event
     Route: 065
  14. LIDOCAINE [Suspect]
     Active Substance: LIDOCAINE
     Indication: Adverse event
     Route: 065
  15. INSTILLAGEL [Suspect]
     Active Substance: CHLORHEXIDINE GLUCONATE\LIDOCAINE HYDROCHLORIDE
     Indication: Product used for unknown indication
     Route: 065
  16. CETIRIZINE HYDROCHLORIDE [Suspect]
     Active Substance: CETIRIZINE HYDROCHLORIDE
     Indication: Product used for unknown indication
     Route: 065
     Dates: start: 20220301
  17. TOPOTECAN HYDROCHLORIDE [Suspect]
     Active Substance: TOPOTECAN HYDROCHLORIDE
     Indication: Refractory cancer
     Dosage: 0.75 MG/M2, 21D (MAXIMUM 5 DAYS EVERY 21 DAYS);
     Route: 042
     Dates: start: 20220221
  18. VENETOCLAX [Suspect]
     Active Substance: VENETOCLAX
     Indication: Refractory cancer
     Dosage: 800 MG, 1X/DAY
     Route: 050
     Dates: start: 20220218
  19. ZINC SULFATE [Concomitant]
     Active Substance: ZINC SULFATE
     Indication: Haemorrhoids
     Dosage: UNKNOWN; ;
     Route: 065
     Dates: start: 20220304
  20. TRIMETHOPRIM [Concomitant]
     Active Substance: TRIMETHOPRIM
     Indication: Product used for unknown indication
     Route: 065
  21. SULFAMETHOXAZOLE [Concomitant]
     Active Substance: SULFAMETHOXAZOLE
     Indication: Product used for unknown indication
     Route: 065
  22. LEVOTHYROXINE [Concomitant]
     Active Substance: LEVOTHYROXINE
     Indication: Hypothyroidism
     Dosage: 75 UG, QD
     Route: 065
     Dates: start: 20200707
  23. ACETAMINOPHEN [Concomitant]
     Active Substance: ACETAMINOPHEN
     Indication: Adverse event
     Route: 065
     Dates: start: 20220308
  24. CLONIDINE [Concomitant]
     Active Substance: CLONIDINE
     Indication: Proctalgia
     Route: 065
  25. KETAMINE [Concomitant]
     Active Substance: KETAMINE
     Indication: Proctalgia
     Route: 065
  26. FENTANYL [Concomitant]
     Active Substance: FENTANYL
     Indication: Proctalgia
     Route: 065
  27. TEICOPLANIN [Concomitant]
     Active Substance: TEICOPLANIN
     Indication: Proctalgia
     Route: 065
  28. MEROPENEM [Concomitant]
     Active Substance: MEROPENEM
     Indication: Proctalgia
     Route: 065
  29. POLYETHYLENE GLYCOLS [Concomitant]
     Active Substance: POLYETHYLENE GLYCOLS
     Indication: Proctalgia
     Dosage: UNKNOWN
     Route: 065
  30. LIPEGFILGRASTIM [Concomitant]
     Active Substance: LIPEGFILGRASTIM
     Indication: Prophylaxis
     Dosage: 6 MG, 1X/DAY
     Route: 050
     Dates: start: 20220227, end: 20220227
  31. LIDOCAINE HYDROCHLORIDE [Concomitant]
     Active Substance: LIDOCAINE HYDROCHLORIDE
     Indication: Product used for unknown indication
     Route: 065
  32. ZINC OXIDE [Concomitant]
     Active Substance: ZINC OXIDE
     Indication: Product used for unknown indication
     Route: 065
  33. COTRIMOXAZOLE [Concomitant]
     Active Substance: SULFAMETHOXAZOLE\TRIMETHOPRIM
     Indication: Pneumocystis jirovecii pneumonia
     Dosage: 1920 MG, 960 MG, (MONDAY, WEDNESDAY AND FRIDAY)
     Route: 050
     Dates: start: 20220218
  34. AMOXICILLIN AND CLAVULANATE POTASSIUM [Concomitant]
     Active Substance: AMOXICILLIN\CLAVULANATE POTASSIUM
     Indication: Adverse event
     Dosage: AN UNSPECIFIED DOSE AND FREQUENCY
     Route: 050
     Dates: start: 20220331
  35. PIPERACILLIN SODIUM\TAZOBACTAM SODIUM [Concomitant]
     Active Substance: PIPERACILLIN SODIUM\TAZOBACTAM SODIUM
     Indication: Adverse event
     Dosage: UNKNOWN
     Route: 065
     Dates: start: 20220302
  36. ONDANSETRON [Concomitant]
     Active Substance: ONDANSETRON
     Indication: Prophylaxis of nausea and vomiting
     Dosage: 72 MG, 24 MG, TID (8 MG, 3 IN ONE DAY)
     Route: 065
     Dates: start: 20220218

REACTIONS (14)
  - Proctalgia [Recovered/Resolved]
  - SARS-CoV-2 test negative [Unknown]
  - Haemorrhoids [Unknown]
  - Accident [Unknown]
  - Crohn^s disease [Unknown]
  - Anal inflammation [Unknown]
  - Back pain [Recovered/Resolved]
  - Malaise [Unknown]
  - Pain [Unknown]
  - Febrile neutropenia [Recovered/Resolved]
  - Diarrhoea [Recovering/Resolving]
  - Body temperature increased [Unknown]
  - Neutropenia [Unknown]
  - Vomiting [Unknown]

NARRATIVE: CASE EVENT DATE: 20220301
